FAERS Safety Report 25551531 (Version 2)
Quarter: 2025Q3

REPORT INFORMATION
  Report Type: Spontaneous
  Country: US (occurrence: US)
  Receive Date: 20250714
  Receipt Date: 20250722
  Transmission Date: 20251020
  Serious: No
  Sender: BRISTOL-MYERS SQUIBB COMPANY
  Company Number: US-BRISTOL-MYERS SQUIBB COMPANY-2025-098433

PATIENT
  Age: 76 Year
  Sex: Male
  Weight: 91.2 kg

DRUGS (6)
  1. ELIQUIS [Suspect]
     Active Substance: APIXABAN
     Indication: Coronary artery disease
     Dosage: TAKE 1 TABLET (5 MG TOTAL) BY MOUTH 2 (TWO) TIMES A DAY INDICATIONS: CAD
     Route: 048
     Dates: start: 20240805
  2. BINIMETINIB [Concomitant]
     Active Substance: BINIMETINIB
     Indication: Lung adenocarcinoma
     Dosage: TAKE 3 TABLETS (45 MG TOTAL) BY MOUTH EVERY 12 (TWELVE) HOURS FOR 28 DAYS
     Route: 048
     Dates: start: 20250703
  3. BINIMETINIB [Concomitant]
     Active Substance: BINIMETINIB
     Indication: Hepatocellular carcinoma
  4. ENCORAFENIB [Concomitant]
     Active Substance: ENCORAFENIB
     Indication: Lung adenocarcinoma
     Dosage: TAKE 6 CAPSULES (450 MG TOTAL) BY MOUTH DAILY FOR 30 DAYS
     Route: 048
     Dates: start: 20250703
  5. ENCORAFENIB [Concomitant]
     Active Substance: ENCORAFENIB
     Indication: Hepatocellular carcinoma
  6. NEURONTIN [Concomitant]
     Active Substance: GABAPENTIN
     Indication: Product used for unknown indication
     Dosage: TAKE 1-2 CAPSULES (300-600 MG TOTAL) BY MOUTH 2 (TWO) TIMES A DAY TAKE 1 TO 2 CAPSULES BY MOUTH TWIC
     Route: 048
     Dates: start: 20250512

REACTIONS (1)
  - Off label use [Unknown]
